FAERS Safety Report 25777200 (Version 2)
Quarter: 2025Q4

REPORT INFORMATION
  Report Type: Spontaneous
  Country: US (occurrence: US)
  Receive Date: 20250909
  Receipt Date: 20251124
  Transmission Date: 20260119
  Serious: No
  Sender: Kenvue
  Company Number: US-KENVUE-20250808996

PATIENT
  Sex: Female

DRUGS (8)
  1. TYLENOL [Suspect]
     Active Substance: ACETAMINOPHEN
     Indication: Headache
     Dosage: UNK
     Route: 065
  2. TYVASO DPI [Concomitant]
     Active Substance: TREPROSTINIL
     Indication: Pulmonary arterial hypertension
     Dosage: 16 MICROGRAM, FOUR TIME A DAY
     Dates: start: 20250723, end: 202508
  3. TYVASO DPI [Concomitant]
     Active Substance: TREPROSTINIL
     Dosage: 32 MICROGRAM, FOUR TIME A DAY
     Dates: start: 202508
  4. TYVASO DPI [Concomitant]
     Active Substance: TREPROSTINIL
     Dosage: TYVASO DPI DRY POWDER, 16 ?G
  5. TYVASO DPI [Concomitant]
     Active Substance: TREPROSTINIL
     Dosage: TYVASO DPI DRY POWDER, 32 ?G
  6. TYVASO DPI [Concomitant]
     Active Substance: TREPROSTINIL
     Dosage: TYVASO DPI DRY POWDER, 48 ?G
  7. TYVASO DPI [Concomitant]
     Active Substance: TREPROSTINIL
     Dosage: TYVASO DPI DRY POWDER, 64 ?G
  8. UPTRAVI [Concomitant]
     Active Substance: SELEXIPAG
     Indication: Product used for unknown indication
     Dosage: UNK
     Route: 065

REACTIONS (1)
  - Drug ineffective [Unknown]

NARRATIVE: CASE EVENT DATE: 20250101
